FAERS Safety Report 23662333 (Version 1)
Quarter: 2024Q1

REPORT INFORMATION
  Report Type: Spontaneous
  Country: IT (occurrence: IT)
  Receive Date: 20240322
  Receipt Date: 20240322
  Transmission Date: 20240410
  Serious: Yes (Hospitalization)
  Sender: FDA-Public Use
  Company Number: None

PATIENT
  Age: 58 Year
  Sex: Male
  Weight: 80 kg

DRUGS (1)
  1. OLANZAPINE PAMOATE [Suspect]
     Active Substance: OLANZAPINE PAMOATE
     Indication: Bipolar disorder
     Dosage: 1 AMPOULE IM EVERY 14 DAYS FOR SEVERAL YEARS, IN THE MORNING, IN THE EVENING
     Route: 030
     Dates: start: 20240225

REACTIONS (4)
  - Confusional state [Recovered/Resolved]
  - Sopor [Recovered/Resolved]
  - Asthenia [Recovered/Resolved]
  - Injection site haemorrhage [Recovered/Resolved]

NARRATIVE: CASE EVENT DATE: 20240225
